FAERS Safety Report 9605618 (Version 2)
Quarter: 2013Q4

REPORT INFORMATION
  Report Type: Spontaneous
  Country: US (occurrence: US)
  Receive Date: 20131008
  Receipt Date: 20131211
  Transmission Date: 20140711
  Serious: Yes (Other)
  Sender: FDA-Public Use
  Company Number: US-PFIZER INC-2013285383

PATIENT
  Age: 47 Year
  Sex: Male
  Weight: 120 kg

DRUGS (18)
  1. PRISTIQ [Suspect]
     Indication: DEPRESSION
     Dosage: 50 MG, DAILY
     Route: 048
     Dates: start: 20130712, end: 2013
  2. GLIPIZIDE [Concomitant]
     Indication: DIABETES MELLITUS
     Dosage: 5 UNK, 1X/DAY
     Dates: start: 2013
  3. METFORMIN [Concomitant]
     Indication: DIABETES MELLITUS
     Dosage: 500 MG, 2X/DAY
     Dates: start: 2013
  4. BUPROPION [Concomitant]
     Indication: DEPRESSION
     Dosage: 100 UNK, 2X/DAY
  5. BUSPAR [Concomitant]
     Indication: ANXIETY
     Dosage: 15 UNK, 3X/DAY
  6. CLONAZEPAM [Concomitant]
     Indication: RESTLESS LEGS SYNDROME
     Dosage: 1 UNK, 2X/DAY
  7. CLONAZEPAM [Concomitant]
     Indication: ANXIETY
  8. ESOMEPRAZOLE [Concomitant]
     Dosage: 40 UNK, 2X/DAY
  9. HYDROCHLOROTHIAZIDE [Concomitant]
     Dosage: 50 UNK, 1X/DAY
  10. HYDROCODONE ES [Concomitant]
     Dosage: 50 UNK, 3X/DAY
  11. INDERAL [Concomitant]
     Dosage: 20 UNK, 3X/DAY
  12. LAMICTAL [Concomitant]
     Indication: DEPRESSION
     Dosage: 300 UNK, 1X/DAY
  13. LISINOPRIL [Concomitant]
     Dosage: 10 UNK, 1X/DAY
  14. LOPID [Concomitant]
     Dosage: 600 UNK, 2X/DAY
  15. MOBIC [Concomitant]
     Dosage: 15 UNK, 1X/DAY
  16. POTASSIUM [Concomitant]
     Dosage: 20 UNK, 2X/DAY
  17. PRAVASTATIN SODIUM [Concomitant]
     Dosage: 40 UNK, 1X/DAY
  18. RANITIDINE [Concomitant]
     Dosage: 150 UNK, 2X/DAY

REACTIONS (3)
  - Urinary retention [Not Recovered/Not Resolved]
  - Pollakiuria [Not Recovered/Not Resolved]
  - Prostatomegaly [Unknown]
